FAERS Safety Report 17328257 (Version 1)
Quarter: 2020Q1

REPORT INFORMATION
  Report Type: Spontaneous
  Country: US (occurrence: US)
  Receive Date: 20200110
  Receipt Date: 20200110
  Transmission Date: 20200409
  Serious: Yes (Hospitalization)
  Sender: FDA-Public Use
  Company Number: None

PATIENT
  Age: 73 Year
  Sex: Female
  Weight: 66.7 kg

DRUGS (1)
  1. DOXIL [Suspect]
     Active Substance: DOXORUBICIN HYDROCHLORIDE
     Dates: end: 20191219

REACTIONS (4)
  - Vomiting [None]
  - Nausea [None]
  - Diarrhoea [None]
  - Gastroenteritis viral [None]

NARRATIVE: CASE EVENT DATE: 20191226
